FAERS Safety Report 12975796 (Version 2)
Quarter: 2017Q2

REPORT INFORMATION
  Report Type: Spontaneous
  Country: US (occurrence: US)
  Receive Date: 20161125
  Receipt Date: 20170403
  Transmission Date: 20170830
  Serious: Yes (Other)
  Sender: FDA-Public Use
  Company Number: US-BAUSCH-BL-2016-028760

PATIENT
  Age: 3 Month
  Sex: Male

DRUGS (2)
  1. FLUOROURACIL. [Suspect]
     Active Substance: FLUOROURACIL
     Indication: DEVELOPMENTAL GLAUCOMA
     Route: 057
  2. PREDNISOLONE ACETATE. [Concomitant]
     Active Substance: PREDNISOLONE ACETATE
     Indication: PRODUCT USED FOR UNKNOWN INDICATION

REACTIONS (5)
  - Intraocular pressure increased [Recovered/Resolved]
  - Toxicity to various agents [Recovered/Resolved]
  - Corneal opacity [Recovered/Resolved]
  - Visual acuity tests abnormal [Recovered/Resolved]
  - Corneal oedema [Recovered/Resolved]
